FAERS Safety Report 23483296 (Version 1)
Quarter: 2024Q1

REPORT INFORMATION
  Report Type: Spontaneous
  Country: US (occurrence: US)
  Receive Date: 20240205
  Receipt Date: 20240205
  Transmission Date: 20240409
  Serious: No
  Sender: FDA-Public Use
  Company Number: US-SUNOVION-2024SUN000091AA

PATIENT

DRUGS (1)
  1. APTIOM [Suspect]
     Active Substance: ESLICARBAZEPINE ACETATE
     Indication: Seizure
     Dosage: BID 700MG IN THE MORNING AND AND 800MG AT BEDTIME
     Route: 048

REACTIONS (2)
  - Malnutrition [Unknown]
  - Off label use [Unknown]
